FAERS Safety Report 4430122-0 (Version None)
Quarter: 2004Q3

REPORT INFORMATION
  Report Type: 
  Country: None (occurrence: None)
  Receive Date: 20040819
  Receipt Date: 20040819
  Transmission Date: 20050211
  Serious: Yes (Life-Threatening, Hospitalization)
  Sender: FDA-Public Use
  Company Number: None

PATIENT
  Age: 90 Year
  Sex: Male
  Weight: 70 kg

DRUGS (16)
  1. CARIMUNE [Suspect]
     Indication: IDIOPATHIC THROMBOCYTOPENIC PURPURA
     Dosage: 70 GM X 2 DOSES IV
     Route: 042
     Dates: start: 20040812, end: 20040813
  2. CARIMUNE [Suspect]
  3. CARIMUNE [Suspect]
  4. CARIMUNE [Suspect]
  5. CARIMUNE [Suspect]
  6. ACETAMINOPHEN [Concomitant]
  7. DIPHENHYDRAMINE HCL [Concomitant]
  8. ERYTHROPOTEIN [Concomitant]
  9. FERROUS SULFATE TAB [Concomitant]
  10. FOLIC ACID [Concomitant]
  11. FUROSEMIDE [Concomitant]
  12. LANSOPRAZOLE [Concomitant]
  13. POTASSIUM [Concomitant]
  14. PREDNISONE [Concomitant]
  15. SIMVASTATIN [Concomitant]
  16. WARFARIN SODIUM [Concomitant]

REACTIONS (1)
  - RENAL FAILURE ACUTE [None]
